FAERS Safety Report 13480401 (Version 2)
Quarter: 2017Q2

REPORT INFORMATION
  Report Type: Spontaneous
  Country: US (occurrence: US)
  Receive Date: 20170425
  Receipt Date: 20170508
  Transmission Date: 20170830
  Serious: Yes (Other)
  Sender: FDA-Public Use
  Company Number: US-009507513-1704USA011811

PATIENT
  Age: 78 Year
  Sex: Male

DRUGS (10)
  1. METOPROLOL TARTRATE. [Concomitant]
     Active Substance: METOPROLOL TARTRATE
     Indication: BLOOD PRESSURE MANAGEMENT
  2. PRINIVIL [Suspect]
     Active Substance: LISINOPRIL
     Indication: PROPHYLAXIS
  3. PRINIVIL [Suspect]
     Active Substance: LISINOPRIL
     Indication: NEPHROPROTECTIVE THERAPY
     Dosage: UNK
     Route: 048
     Dates: start: 2008
  4. AMLODIPINE [Concomitant]
     Active Substance: AMLODIPINE BESYLATE
     Dosage: 10 MG, UNK
  5. VIAGRA [Concomitant]
     Active Substance: SILDENAFIL CITRATE
  6. WARFARIN [Concomitant]
     Active Substance: WARFARIN
  7. PRINIVIL [Suspect]
     Active Substance: LISINOPRIL
     Indication: CARDIAC FAILURE
  8. CRESTOR [Concomitant]
     Active Substance: ROSUVASTATIN CALCIUM
  9. AMLODIPINE [Concomitant]
     Active Substance: AMLODIPINE BESYLATE
     Indication: BLOOD PRESSURE MANAGEMENT
     Dosage: 20 MG, UNK
  10. FLOMAX [Concomitant]
     Active Substance: TAMSULOSIN HYDROCHLORIDE
     Indication: PROSTATOMEGALY

REACTIONS (5)
  - Blood pressure decreased [Unknown]
  - Flushing [Unknown]
  - Prostatomegaly [Unknown]
  - Cataract [Unknown]
  - Atrial fibrillation [Unknown]

NARRATIVE: CASE EVENT DATE: 2014
